FAERS Safety Report 6429737-X (Version None)
Quarter: 2009Q4

REPORT INFORMATION
  Report Type: 
  Country: None (occurrence: None)
  Receive Date: 20091103
  Receipt Date: 20091019
  Transmission Date: 20100525
  Serious: Yes (Hospitalization)
  Sender: FDA-Public Use
  Company Number: 02100-JPN-07-0029

PATIENT
  Age: 61 Year
  Sex: Male

DRUGS (4)
  1. PLETAL [Suspect]
     Indication: CEREBRAL INFARCTION
     Dosage: 100 MG, BID ORAL
     Route: 048
     Dates: start: 20041027, end: 20070117
  2. PROMAC (POLAPREZINC) [Concomitant]
  3. TENORMIN [Concomitant]
  4. URSO 250 [Concomitant]

REACTIONS (3)
  - DIZZINESS [None]
  - HEPATIC STEATOSIS [None]
  - SUDDEN HEARING LOSS [None]
